FAERS Safety Report 9702100 (Version 1)
Quarter: 2013Q4

REPORT INFORMATION
  Report Type: Report from Study
  Country: US (occurrence: US)
  Receive Date: 20131121
  Receipt Date: 20131121
  Transmission Date: 20140711
  Serious: Yes (Hospitalization)
  Sender: FDA-Public Use
  Company Number: US-OTSUKA-US-2013-12169

PATIENT
  Age: 42 Year
  Sex: Male
  Weight: 90.9 kg

DRUGS (7)
  1. BUSULFEX [Suspect]
     Indication: HAEMATOLOGICAL MALIGNANCY
     Dosage: UNK, DAILY DOSE
     Route: 042
     Dates: start: 20070123, end: 20070126
  2. BUSULFEX [Suspect]
     Indication: STEM CELL TRANSPLANT
  3. FLUDARABINE [Suspect]
     Indication: HAEMATOLOGICAL MALIGNANCY
     Dosage: UNK, DAILY DOSE
     Route: 042
     Dates: start: 20070122, end: 20070127
  4. FLUDARABINE [Suspect]
     Indication: STEM CELL TRANSPLANT
  5. ALEMTUZUMAB [Suspect]
     Indication: HAEMATOLOGICAL MALIGNANCY
     Dosage: 20 MG MILLIGRAM(S), DAILY DOSE
     Route: 042
     Dates: start: 20070122, end: 20070126
  6. ALEMTUZUMAB [Suspect]
     Indication: STEM CELL TRANSPLANT
  7. CLONAZEPAM [Suspect]
     Dosage: UNK
     Route: 048

REACTIONS (2)
  - Ascites [Unknown]
  - Liver function test abnormal [None]
